FAERS Safety Report 8073958-X (Version None)
Quarter: 2012Q1

REPORT INFORMATION
  Report Type: 
  Country: None (occurrence: None)
  Receive Date: 20120119
  Receipt Date: 20120110
  Transmission Date: 20120608
  Serious: Yes (Hospitalization)
  Sender: FDA-Public Use
  Company Number: 1000019020

PATIENT
  Age: 25 Year
  Sex: Male

DRUGS (6)
  1. OMEPRAZOLE [Suspect]
     Dosage: 20 MG (20 MG,1 IN 1 D)
  2. CLOZAPINE [Suspect]
     Indication: SCHIZOPHRENIA, PARANOID TYPE
     Dosage: 600 MG (600 MG,1 IN 1 D)
  3. RISPERIDONE [Suspect]
     Indication: SCHIZOPHRENIA, PARANOID TYPE
     Dosage: (50 MG),INTRAMUSCULAR
     Route: 030
  4. ESCITALOPRAM OXALATE [Suspect]
     Dosage: 10 MG (10 MG,1 IN 1 D)
  5. TOPIRAMATE [Suspect]
     Dosage: 400 MG (400 MG,1 IN 1 D)
  6. BIPERIDEN HYDROCHLORIDE TAB [Suspect]
     Dosage: 4 MG (4 MG)

REACTIONS (2)
  - HEPATIC ENCEPHALOPATHY [None]
  - HEPATITIS TOXIC [None]
